FAERS Safety Report 5930789-1 (Version None)
Quarter: 2008Q4

REPORT INFORMATION
  Report Type: 
  Country: None (occurrence: None)
  Receive Date: 20081022
  Receipt Date: 20081012
  Transmission Date: 20090506
  Serious: Yes (Death, Hospitalization, Other)
  Sender: FDA-Public Use
  Company Number: 2007-03765

PATIENT
  Age: 75 Year
  Sex: Female
  Weight: 44 kg

DRUGS (13)
  1. VELCADE [Suspect]
     Indication: MULTIPLE MYELOMA
     Dosage: 1.70 MG, INTRAVENOUS
     Route: 042
     Dates: start: 20071016, end: 20071026
  2. DEXAMETHASONE 0.5MG TAB [Concomitant]
  3. OXYCONTIN [Concomitant]
  4. ETODOLAC [Concomitant]
  5. RIZE (CLOTIAZEPAM) [Concomitant]
  6. DOGMATYL (SULPIRIDE) [Concomitant]
  7. SULFAMETHOXAZOLE AND TRIMETHOPRIM [Concomitant]
  8. LENDORM [Concomitant]
  9. ZANTAC 150 [Concomitant]
  10. PURSENNID (SENNA LEAF) [Concomitant]
  11. RED BLOOD CELLS [Concomitant]
  12. PLATELETS [Concomitant]
  13. SOLITA T (ELECTROLYTES NOS) [Concomitant]

REACTIONS (8)
  - DIPLEGIA [None]
  - DISEASE PROGRESSION [None]
  - DISORIENTATION [None]
  - DYSSTASIA [None]
  - LEUKOENCEPHALOPATHY [None]
  - PARESIS [None]
  - PLATELET COUNT DECREASED [None]
  - PYREXIA [None]
